FAERS Safety Report 4796206-2 (Version None)
Quarter: 2005Q4

REPORT INFORMATION
  Report Type: 
  Country: None (occurrence: None)
  Receive Date: 20051006
  Receipt Date: 20051006
  Transmission Date: 20060501
  Serious: Yes (Other)
  Sender: FDA-Public Use
  Company Number: None

PATIENT
  Sex: Female

DRUGS (7)
  1. OXYCODONE HCL [Suspect]
     Indication: NERVE COMPRESSION
     Dosage: 2 TABS EVERY 12 HOURS
  2. OXYCODONE HCL [Suspect]
     Dosage: 1 TAB EVERY 12 HOURS
  3. NORVASC [Concomitant]
  4. ATENOLOL [Concomitant]
  5. COUMADIN [Concomitant]
  6. ELAVIL [Concomitant]
  7. ZANTAC [Concomitant]

REACTIONS (4)
  - DRUG INEFFECTIVE [None]
  - PAIN [None]
  - STOOL ANALYSIS ABNORMAL [None]
  - THERAPEUTIC RESPONSE UNEXPECTED WITH DRUG SUBSTITUTION [None]
